FAERS Safety Report 22224092 (Version 1)
Quarter: 2023Q2

REPORT INFORMATION
  Report Type: Spontaneous
  Country: US (occurrence: US)
  Receive Date: 20230418
  Receipt Date: 20230418
  Transmission Date: 20230722
  Serious: Yes (Other)
  Sender: FDA-Public Use
  Company Number: US-ELI_LILLY_AND_COMPANY-US202304005125

PATIENT
  Sex: Female

DRUGS (1)
  1. VERZENIO [Suspect]
     Active Substance: ABEMACICLIB
     Indication: Breast cancer metastatic
     Dosage: 150 MG, UNKNOWN
     Route: 048

REACTIONS (14)
  - Musculoskeletal discomfort [Recovering/Resolving]
  - Loss of consciousness [Recovering/Resolving]
  - Seizure [Recovering/Resolving]
  - Brain stem syndrome [Recovering/Resolving]
  - Spinal cord compression [Recovering/Resolving]
  - Cough [Recovering/Resolving]
  - Bone disorder [Recovering/Resolving]
  - Spinal disorder [Recovering/Resolving]
  - Vertigo [Recovering/Resolving]
  - Gait inability [Recovering/Resolving]
  - Balance disorder [Recovering/Resolving]
  - Dysphagia [Recovering/Resolving]
  - Dizziness [Recovering/Resolving]
  - White blood cell count decreased [Not Recovered/Not Resolved]
